FAERS Safety Report 5704444-7 (Version None)
Quarter: 2008Q2

REPORT INFORMATION
  Report Type: 
  Country: None (occurrence: None)
  Receive Date: 20080414
  Receipt Date: 20080408
  Transmission Date: 20081010
  Serious: Yes (Disabling)
  Sender: FDA-Public Use
  Company Number: D0056733A

PATIENT
  Age: 70 Year
  Sex: Male
  Weight: 114 kg

DRUGS (10)
  1. AVANDIA [Suspect]
     Dosage: 4MG PER DAY
     Route: 048
     Dates: start: 20070201, end: 20071001
  2. MARCUMAR [Concomitant]
     Route: 048
  3. BISOPROLOL + HYDROCHLOROTHIAZIDE [Concomitant]
     Dosage: 35MG UNKNOWN
     Route: 048
  4. BISOPROLOL FUMARATE [Concomitant]
     Dosage: 5MG PER DAY
     Route: 048
  5. AMLODIPINE [Concomitant]
     Dosage: 5MG PER DAY
     Route: 048
  6. OLMESARTAN MEDOXOMIL [Concomitant]
     Dosage: 20MG PER DAY
     Route: 048
  7. EBRANTIL [Concomitant]
     Dosage: 30MG THREE TIMES PER DAY
     Route: 048
  8. FLUVASTATIN [Concomitant]
     Dosage: 80MG PER DAY
     Route: 048
  9. IBUPROFEN [Concomitant]
     Dosage: 600MG PER DAY
     Route: 048
  10. TOREM [Concomitant]
     Dosage: 10MG PER DAY
     Route: 048

REACTIONS (4)
  - DYSPNOEA [None]
  - FLUID RETENTION [None]
  - OBESITY [None]
  - WEIGHT INCREASED [None]
